FAERS Safety Report 10166958 (Version 1)
Quarter: 2014Q2

REPORT INFORMATION
  Report Type: Spontaneous
  Country: US (occurrence: US)
  Receive Date: 20140512
  Receipt Date: 20140512
  Transmission Date: 20141212
  Serious: No
  Sender: FDA-Public Use
  Company Number: US-BAYER-2014-067702

PATIENT
  Sex: Female

DRUGS (1)
  1. FINACEA [Suspect]
     Dosage: UNK UNK, BID
     Route: 061

REACTIONS (4)
  - Hypersensitivity [Unknown]
  - Erythema [Unknown]
  - Burning sensation [Unknown]
  - Pruritus [Unknown]
